FAERS Safety Report 9315695 (Version 1)
Quarter: 2013Q2

REPORT INFORMATION
  Report Type: Spontaneous
  Country: US (occurrence: US)
  Receive Date: 20130529
  Receipt Date: 20130529
  Transmission Date: 20140414
  Serious: Yes (Hospitalization)
  Sender: FDA-Public Use
  Company Number: US-ELI_LILLY_AND_COMPANY-US201305006420

PATIENT
  Sex: Female

DRUGS (4)
  1. HUMULIN REGULAR [Suspect]
     Dosage: 10 U, TID
     Dates: start: 2011, end: 20120612
  2. HUMULIN REGULAR [Suspect]
     Dosage: 10 U, TID
     Dates: start: 20120925
  3. METFORMIN [Concomitant]
  4. LISINOPRIL                              /USA/ [Concomitant]

REACTIONS (8)
  - Fall [Unknown]
  - Wrist fracture [Unknown]
  - Hip fracture [Unknown]
  - Fall [Unknown]
  - Asthenia [Unknown]
  - Abasia [Unknown]
  - Cartilage atrophy [Not Recovered/Not Resolved]
  - Medication error [Unknown]
